FAERS Safety Report 13902461 (Version 1)
Quarter: 2017Q3

REPORT INFORMATION
  Report Type: Spontaneous
  Country: US (occurrence: US)
  Receive Date: 20170824
  Receipt Date: 20170824
  Transmission Date: 20171127
  Serious: No
  Sender: FDA-Public Use
  Company Number: US-ROCHE-794172

PATIENT
  Sex: Female

DRUGS (1)
  1. HERCEPTIN [Suspect]
     Active Substance: TRASTUZUMAB
     Indication: BREAST CANCER
     Dosage: FORM: INFUSION
     Route: 065

REACTIONS (3)
  - Incorrect route of drug administration [Unknown]
  - Injection site vesicles [Unknown]
  - Extravasation [Unknown]

NARRATIVE: CASE EVENT DATE: 20110729
